FAERS Safety Report 19011354 (Version 1)
Quarter: 2021Q1

REPORT INFORMATION
  Report Type: Spontaneous
  Country: CN (occurrence: CN)
  Receive Date: 20210316
  Receipt Date: 20210316
  Transmission Date: 20210420
  Serious: Yes (Other)
  Sender: FDA-Public Use
  Company Number: CN-BAXTER-2021BAX004851

PATIENT
  Age: 39 Year
  Sex: Female
  Weight: 49 kg

DRUGS (5)
  1. ENDOXAN [Suspect]
     Active Substance: CYCLOPHOSPHAMIDE
     Indication: BREAST CANCER FEMALE
     Dosage: 1ST CHEMOTHERAPY; ENDOXAN 850 MG + NS 45 ML
     Route: 042
     Dates: start: 20201231, end: 20201231
  2. 0.9% SODIUM CHLORIDE INJECTION [Suspect]
     Active Substance: SODIUM CHLORIDE
     Dosage: 1ST CHEMOTHERAPY; TAXOTERE 108 MG + NS 250ML
     Route: 041
     Dates: start: 20201231, end: 20201231
  3. JINYOULI [Concomitant]
     Active Substance: ANF-RHO
     Indication: PRODUCT USED FOR UNKNOWN INDICATION
     Route: 058
     Dates: start: 20210101, end: 20210101
  4. 0.9% SODIUM CHLORIDE INJECTION [Suspect]
     Active Substance: SODIUM CHLORIDE
     Indication: MEDICATION DILUTION
     Dosage: 1ST CHEMOTHERAPY; ENDOXAN 850 MG + NS 45 ML
     Route: 042
     Dates: start: 20201231, end: 20201231
  5. TAXOTERE [Suspect]
     Active Substance: DOCETAXEL
     Indication: BREAST CANCER FEMALE
     Dosage: 1ST CHEMOTHERAPY; TAXOTERE 108 MG + NS 250ML
     Route: 041
     Dates: start: 20201231, end: 20201231

REACTIONS (2)
  - Leukopenia [Recovered/Resolved]
  - Agranulocytosis [Recovered/Resolved]

NARRATIVE: CASE EVENT DATE: 20210106
